FAERS Safety Report 4337380-1 (Version None)
Quarter: 2004Q2

REPORT INFORMATION
  Report Type: 
  Country: None (occurrence: None)
  Receive Date: 20040406
  Receipt Date: 20040122
  Transmission Date: 20050107
  Serious: No
  Sender: FDA-Public Use
  Company Number: 357071

PATIENT
  Age: 38 Year
  Sex: Male
  Weight: 60 kg

DRUGS (6)
  1. FUZEON [Suspect]
     Indication: HIV INFECTION
     Dosage: 90 MG 2 PER DAY SUBCUTANEOUS
     Route: 058
     Dates: start: 20031003, end: 20040128
  2. PROCRIT (EPOETIN ALFA) [Concomitant]
  3. REYATAZ (ATAZANAVIR) [Concomitant]
  4. DAPSONE [Concomitant]
  5. VALTREX [Concomitant]
  6. UNKNOWN DRUG (GENERIC COMPONENT(S) UNKNOWN) [Concomitant]

REACTIONS (6)
  - GASTROINTESTINAL INJURY [None]
  - INJECTION SITE ERYTHEMA [None]
  - INJECTION SITE PAIN [None]
  - INJECTION SITE REACTION [None]
  - LYMPHOMA [None]
  - SKIN NODULE [None]
